FAERS Safety Report 8338908-7 (Version None)
Quarter: 2012Q2

REPORT INFORMATION
  Report Type: 
  Country: None (occurrence: None)
  Receive Date: 20120506
  Receipt Date: 20120425
  Transmission Date: 20120825
  Serious: Yes (Hospitalization)
  Sender: FDA-Public Use
  Company Number: NL-MEDIMMUNE-MEDI-0015382

PATIENT
  Sex: Female

DRUGS (3)
  1. SYNAGIS [Suspect]
     Route: 030
     Dates: start: 20120329, end: 20120329
  2. SYNAGIS [Suspect]
     Indication: PREMATURE BABY
     Route: 030
     Dates: start: 20111108, end: 20120228
  3. DEXAMETHASONE [Concomitant]
     Dates: end: 20120318

REACTIONS (4)
  - LUNG DISORDER [None]
  - DYSPNOEA [None]
  - CROUP INFECTIOUS [None]
  - BREATH SOUNDS ABNORMAL [None]
